FAERS Safety Report 8222262-5 (Version None)
Quarter: 2012Q1

REPORT INFORMATION
  Report Type: 
  Country: None (occurrence: None)
  Receive Date: 20120320
  Receipt Date: 20120313
  Transmission Date: 20120608
  Serious: Yes (Other)
  Sender: FDA-Public Use
  Company Number: US-GLAXOSMITHKLINE-A0953802A

PATIENT
  Age: 56 Year
  Sex: Male

DRUGS (6)
  1. LIVALO [Concomitant]
  2. ASPIRIN [Concomitant]
  3. AVANDAMET [Suspect]
     Indication: DIABETES MELLITUS
     Route: 065
     Dates: start: 20090101, end: 20110101
  4. CRESTOR [Concomitant]
  5. LYRICA [Concomitant]
  6. GLYBURIDE [Concomitant]

REACTIONS (2)
  - DIABETES MELLITUS INADEQUATE CONTROL [None]
  - ADVERSE DRUG REACTION [None]
